FAERS Safety Report 24999752 (Version 1)
Quarter: 2025Q1

REPORT INFORMATION
  Report Type: Spontaneous
  Country: US (occurrence: US)
  Receive Date: 20250222
  Receipt Date: 20250222
  Transmission Date: 20250409
  Serious: No
  Sender: ABBVIE
  Company Number: US-ABBVIE-6145882

PATIENT
  Sex: Female

DRUGS (1)
  1. VRAYLAR [Suspect]
     Active Substance: CARIPRAZINE
     Indication: Product used for unknown indication
     Dosage: CARIPRAZINE HCL 1.5MG CAP (011327X)?FORM STRENGTH: 1.5MG?DURATION: ABOUT A MONTH
     Route: 048

REACTIONS (1)
  - Tardive dyskinesia [Unknown]
